FAERS Safety Report 5048756-1 (Version None)
Quarter: 2006Q3

REPORT INFORMATION
  Report Type: 
  Country: None (occurrence: None)
  Receive Date: 20060705
  Receipt Date: 20060619
  Transmission Date: 20061208
  Serious: Yes (Death)
  Sender: FDA-Public Use
  Company Number: 111066ISR

PATIENT
  Age: 37 Year
  Sex: Male

DRUGS (7)
  1. VINCRISTINE [Suspect]
     Indication: MULTIPLE MYELOMA
     Dosage: INTRAVENOUS (NOS)
     Route: 042
     Dates: start: 20060215, end: 20060418
  2. VELCADE [Suspect]
     Indication: MULTIPLE MYELOMA
     Dosage: INTRAVENOUS (NOS)
     Route: 042
     Dates: start: 20060418, end: 20060421
  3. DOXORUBICIN HYDROCHLORIDE [Suspect]
     Indication: MULTIPLE MYELOMA
     Dosage: INTRAVENOUS (NOS)
     Route: 042
     Dates: start: 20060215, end: 20060418
  4. DEXRAZOXANE HYDROCHLORIDE [Concomitant]
  5. CEFTAZIDIME PENTAHYDRATE [Concomitant]
  6. CIPROFLOXACIN [Concomitant]
  7. AUGMENTIN '125' [Concomitant]

REACTIONS (1)
  - SUDDEN DEATH [None]
